FAERS Safety Report 16261244 (Version 1)
Quarter: 2019Q2

REPORT INFORMATION
  Report Type: Spontaneous
  Country: US (occurrence: US)
  Receive Date: 20190501
  Receipt Date: 20190501
  Transmission Date: 20190711
  Serious: Yes (Hospitalization, Other)
  Sender: FDA-Public Use
  Company Number: US-SA-2019SA116681

PATIENT
  Age: 56 Year
  Sex: Female

DRUGS (37)
  1. MYFORTIC [Suspect]
     Active Substance: MYCOPHENOLATE SODIUM
  2. HYDROXYZINE [Concomitant]
     Active Substance: HYDROXYZINE HYDROCHLORIDE
  3. SULFAMETHOXAZOLE [Concomitant]
     Active Substance: SULFAMETHOXAZOLE
  4. MYCOPHENOLATE MOFETIL. [Suspect]
     Active Substance: MYCOPHENOLATE MOFETIL
  5. HYDROMORPHONE [Concomitant]
     Active Substance: HYDROMORPHONE
  6. DIOVAN [Concomitant]
     Active Substance: VALSARTAN
  7. LATANOPROST. [Concomitant]
     Active Substance: LATANOPROST
  8. TIMOLOL MALEATE. [Concomitant]
     Active Substance: TIMOLOL MALEATE
  9. METOPROLOL TARTRATE. [Concomitant]
     Active Substance: METOPROLOL TARTRATE
  10. LACTATED RINGERS SOLUTION [Concomitant]
     Active Substance: CALCIUM CHLORIDE\POTASSIUM CHLORIDE\SODIUM CHLORIDE\SODIUM LACTATE
  11. LOVASTATIN. [Concomitant]
     Active Substance: LOVASTATIN
  12. ACETAMINOPHEN. [Concomitant]
     Active Substance: ACETAMINOPHEN
  13. HYDRALAZINE [Concomitant]
     Active Substance: HYDRALAZINE HYDROCHLORIDE
  14. VALGANCICLOVIR. [Concomitant]
     Active Substance: VALGANCICLOVIR
  15. LABETALOL [Concomitant]
     Active Substance: LABETALOL\LABETALOL HYDROCHLORIDE
  16. TACROLIMUS. [Suspect]
     Active Substance: TACROLIMUS
  17. NYSTATIN. [Concomitant]
     Active Substance: NYSTATIN
  18. OXYCODONE [Concomitant]
     Active Substance: OXYCODONE
  19. CLONIDINE. [Concomitant]
     Active Substance: CLONIDINE
  20. SENSIPAR [Concomitant]
     Active Substance: CINACALCET HYDROCHLORIDE
  21. BUSPIRONE [Concomitant]
     Active Substance: BUSPIRONE HYDROCHLORIDE
  22. POLYETHYLENE GLYCOL [Concomitant]
     Active Substance: POLYETHYLENE GLYCOLS
  23. FUROSEMIDE. [Concomitant]
     Active Substance: FUROSEMIDE
  24. LIDOCAINE. [Concomitant]
     Active Substance: LIDOCAINE
  25. ONDANSETRON [Concomitant]
     Active Substance: ONDANSETRON
  26. PHENYLEPHRINE [Concomitant]
     Active Substance: PHENYLEPHRINE\PHENYLEPHRINE HYDROCHLORIDE
  27. RED BLOOD CELLS, CONCENTRATED [Concomitant]
     Active Substance: HUMAN RED BLOOD CELL
  28. DIPHENHYDRAMINE. [Concomitant]
     Active Substance: DIPHENHYDRAMINE
  29. METHYLPREDNISOLONE. [Suspect]
     Active Substance: METHYLPREDNISOLONE
  30. BISACODYL. [Concomitant]
     Active Substance: BISACODYL
  31. THYMOGLOBULIN [Suspect]
     Active Substance: LAPINE T-LYMPHOCYTE IMMUNE GLOBULIN
  32. IPRATROPIUM BROMIDE. [Concomitant]
     Active Substance: IPRATROPIUM BROMIDE
  33. PANTOPRAZOLE [Concomitant]
     Active Substance: PANTOPRAZOLE
  34. DESMOPRESSIN [Concomitant]
     Active Substance: DESMOPRESSIN
  35. RANITIDINE. [Concomitant]
     Active Substance: RANITIDINE
  36. BRIMONIDINE [Concomitant]
     Active Substance: BRIMONIDINE TARTRATE
  37. DOCUSATE SODIUM. [Concomitant]
     Active Substance: DOCUSATE SODIUM

REACTIONS (14)
  - Pain [Unknown]
  - Dysphagia [Recovered/Resolved]
  - Oedema peripheral [Unknown]
  - Leukopenia [Recovered/Resolved]
  - Pharyngitis [Recovered/Resolved]
  - Constipation [Unknown]
  - BK virus infection [Recovered/Resolved]
  - Diarrhoea [Unknown]
  - Oropharyngeal pain [Recovered/Resolved]
  - Erythema [Unknown]
  - Urticaria [Unknown]
  - White blood cell count decreased [Recovered/Resolved]
  - Odynophagia [Recovered/Resolved]
  - Renal tubular necrosis [Unknown]

NARRATIVE: CASE EVENT DATE: 201708
